FAERS Safety Report 9014907 (Version 1)
Quarter: 2013Q1

REPORT INFORMATION
  Report Type: Spontaneous
  Country: US (occurrence: US)
  Receive Date: 20130116
  Receipt Date: 20130116
  Transmission Date: 20140127
  Serious: No
  Sender: FDA-Public Use
  Company Number: US-BIOGENIDEC-2013BI001931

PATIENT
  Sex: Female

DRUGS (5)
  1. TYSABRI [Suspect]
     Indication: MULTIPLE SCLEROSIS
     Route: 042
     Dates: start: 20070223
  2. RITALIN [Concomitant]
     Indication: ATTENTION DEFICIT/HYPERACTIVITY DISORDER
  3. SERTRALINE [Concomitant]
     Indication: DEPRESSION
  4. MIRTAZAPINE [Concomitant]
     Indication: DEPRESSION
  5. DETROL LA [Concomitant]
     Indication: URGE INCONTINENCE

REACTIONS (1)
  - Memory impairment [Not Recovered/Not Resolved]
